FAERS Safety Report 10914968 (Version 1)
Quarter: 2015Q1

REPORT INFORMATION
  Report Type: Report from Study
  Country: CA (occurrence: CA)
  Receive Date: 20150314
  Receipt Date: 20150314
  Transmission Date: 20150721
  Serious: Yes (Death, Hospitalization)
  Sender: FDA-Public Use
  Company Number: CA-JNJFOC-20150306512

PATIENT
  Age: 37 Year
  Sex: Female

DRUGS (5)
  1. APAP [Suspect]
     Active Substance: ACETAMINOPHEN
     Route: 065
  2. CODEINE PHOSPHATE [Suspect]
     Active Substance: CODEINE PHOSPHATE
     Indication: PRODUCT USED FOR UNKNOWN INDICATION
     Route: 065
  3. ALCOHOL. [Suspect]
     Active Substance: ALCOHOL
     Indication: PRODUCT USED FOR UNKNOWN INDICATION
     Route: 065
  4. APAP [Suspect]
     Active Substance: ACETAMINOPHEN
     Indication: PRODUCT USED FOR UNKNOWN INDICATION
     Route: 065
     Dates: start: 19920307, end: 19920318
  5. CAFFEINE. [Suspect]
     Active Substance: CAFFEINE
     Indication: PRODUCT USED FOR UNKNOWN INDICATION
     Route: 065

REACTIONS (6)
  - Substance abuse [Fatal]
  - Varices oesophageal [Fatal]
  - Overdose [Fatal]
  - Cirrhosis alcoholic [Fatal]
  - Oesophageal ulcer perforation [Fatal]
  - Alcoholism [Fatal]
